FAERS Safety Report 6383916-9 (Version None)
Quarter: 2009Q3

REPORT INFORMATION
  Report Type: 
  Country: None (occurrence: None)
  Receive Date: 20090928
  Receipt Date: 20090910
  Transmission Date: 20100115
  Serious: Yes (Hospitalization)
  Sender: FDA-Public Use
  Company Number: 001744

PATIENT
  Sex: Female

DRUGS (15)
  1. METOLAZONE [Suspect]
     Dosage: 5 MG ORAL
     Route: 048
     Dates: start: 20080101, end: 20081105
  2. AVANDAMET [Suspect]
     Indication: TYPE 2 DIABETES MELLITUS
     Dosage: 1 DOSAGE FORM DAILY ORAL
     Dates: start: 20080101, end: 20081119
  3. CAPOZIDE 25/15 [Suspect]
     Indication: ESSENTIAL HYPERTENSION
     Dosage: 50 MG ORAL
     Route: 048
     Dates: start: 20080101, end: 20081105
  4. CAPOZIDE 25/15 [Suspect]
     Indication: ESSENTIAL HYPERTENSION
     Dosage: 50 MG ORAL
     Route: 048
     Dates: start: 20081112, end: 20081117
  5. DAFALGAN /00020001/ (DAFALGAN) (NOT SPECIFIED) [Suspect]
     Dosage: ORAL
     Route: 048
  6. CALCIMAGON-D3 [Concomitant]
  7. PREDNISON [Concomitant]
  8. ADALAT [Concomitant]
  9. METFORMIN HYDROCHLORIDE [Concomitant]
  10. POTASSIUM CHLORIDE [Concomitant]
  11. SERETIDE /01420901/ [Concomitant]
  12. VENTOLIN [Concomitant]
  13. PSYLLIUM HUSK /00029102/ [Concomitant]
  14. METAMUCIL /01430601/ [Concomitant]
  15. FOSAMAX [Concomitant]

REACTIONS (4)
  - BLOOD PRESSURE INCREASED [None]
  - CHRONIC OBSTRUCTIVE PULMONARY DISEASE [None]
  - CONDITION AGGRAVATED [None]
  - IDIOPATHIC THROMBOCYTOPENIC PURPURA [None]
